FAERS Safety Report 11656557 (Version 2)
Quarter: 2015Q4

REPORT INFORMATION
  Report Type: Spontaneous
  Country: US (occurrence: US)
  Receive Date: 20151023
  Receipt Date: 20151029
  Transmission Date: 20160304
  Serious: Yes (Other)
  Sender: FDA-Public Use
  Company Number: US-PFIZER INC-2015358041

PATIENT
  Age: 9 Year
  Sex: Male

DRUGS (2)
  1. QUILLIVANT XR [Suspect]
     Active Substance: METHYLPHENIDATE HYDROCHLORIDE
     Dosage: 4 ML, DAILY
     Dates: start: 20151020, end: 20151021
  2. QUILLIVANT XR [Suspect]
     Active Substance: METHYLPHENIDATE HYDROCHLORIDE
     Indication: ATTENTION DEFICIT/HYPERACTIVITY DISORDER
     Dosage: 7 ML, DAILY
     Dates: start: 2013, end: 20151019

REACTIONS (3)
  - Homicidal ideation [Unknown]
  - Suicidal ideation [Unknown]
  - Aggression [Unknown]

NARRATIVE: CASE EVENT DATE: 2015
